FAERS Safety Report 17085867 (Version 1)
Quarter: 2019Q4

REPORT INFORMATION
  Report Type: Spontaneous
  Country: US (occurrence: US)
  Receive Date: 20191031
  Receipt Date: 20191031
  Transmission Date: 20200122
  Serious: Yes (Hospitalization)
  Sender: FDA-Public Use
  Company Number: None

PATIENT
  Sex: Male
  Weight: 122 kg

DRUGS (3)
  1. CISPLATIN. [Suspect]
     Active Substance: CISPLATIN
  2. GEMCITABINE HYDROCHLORIDE. [Concomitant]
     Active Substance: GEMCITABINE HYDROCHLORIDE
  3. PACLITAXEL PROTEIN-BOUND PARTICLES (ALBUMIN-BOUND) [Concomitant]
     Active Substance: PACLITAXEL

REACTIONS (10)
  - Septic shock [None]
  - Abdominal pain [None]
  - Myocardial infarction [None]
  - Pneumonia [None]
  - Bacterial infection [None]
  - General physical health deterioration [None]
  - Back pain [None]
  - Multiple organ dysfunction syndrome [None]
  - Liver abscess [None]
  - Fatigue [None]

NARRATIVE: CASE EVENT DATE: 20191028
